FAERS Safety Report 19210126 (Version 6)
Quarter: 2023Q1

REPORT INFORMATION
  Report Type: Report from Study
  Country: CA (occurrence: CA)
  Receive Date: 20210504
  Receipt Date: 20230301
  Transmission Date: 20230417
  Serious: Yes (Other)
  Sender: FDA-Public Use
  Company Number: CA-JNJFOC-20210500235

PATIENT
  Age: 78 Year
  Sex: Male

DRUGS (2)
  1. SIMPONI [Suspect]
     Active Substance: GOLIMUMAB
     Indication: Crohn^s disease
     Dosage: SIMPONI 100MG SC AT WEEK 0, THEN AT WEEK 2, THEN EVERY 4 WEEKS THEREAFTER., ALSO REPORTED 21-APR-202
     Route: 058
     Dates: start: 20210408
  2. SIMPONI [Suspect]
     Active Substance: GOLIMUMAB
     Dosage: SIMPONI 100MG SC AT WEEK 0, THEN AT WEEK 2, THEN EVERY 4 WEEKS THEREAFTER., ALSO REPORTED 21-APR-202
     Route: 058
     Dates: start: 20210421

REACTIONS (2)
  - Pneumonia [Unknown]
  - Product dose omission issue [Unknown]

NARRATIVE: CASE EVENT DATE: 20210401
